FAERS Safety Report 9294404 (Version 1)
Quarter: 2013Q2

REPORT INFORMATION
  Report Type: Spontaneous
  Country: US (occurrence: None)
  Receive Date: 20130516
  Receipt Date: 20130516
  Transmission Date: 20140414
  Serious: Yes (Other)
  Sender: FDA-Public Use
  Company Number: None

PATIENT
  Sex: Male
  Weight: 140.8 kg

DRUGS (2)
  1. DOXAZOSIN [Suspect]
     Indication: BENIGN PROSTATIC HYPERPLASIA
     Route: 048
  2. DOXAZOSIN [Suspect]
     Indication: HYPERTENSION
     Route: 048

REACTIONS (2)
  - Drug ineffective [None]
  - Product substitution issue [None]
